FAERS Safety Report 4518493-8 (Version None)
Quarter: 2004Q4

REPORT INFORMATION
  Report Type: 
  Country: None (occurrence: None)
  Receive Date: 20041203
  Receipt Date: 20041026
  Transmission Date: 20050328
  Serious: Yes (Hospitalization)
  Sender: FDA-Public Use
  Company Number: NZ-MERCK-0410NZL00105

PATIENT
  Age: 52 Year
  Sex: Female

DRUGS (7)
  1. VIOXX [Suspect]
     Indication: POST VIRAL FATIGUE SYNDROME
     Route: 048
     Dates: start: 20030801
  2. VIOXX [Suspect]
     Route: 048
     Dates: start: 20040902, end: 20041003
  3. VIOXX [Suspect]
     Indication: CHEST PAIN
     Route: 048
     Dates: start: 20030801
  4. VIOXX [Suspect]
     Route: 048
     Dates: start: 20040902, end: 20041003
  5. ESTROGENS, CONJUGATED AND MEDROXYPROGESTERONE ACETATE [Concomitant]
     Indication: HORMONE REPLACEMENT THERAPY
     Route: 048
     Dates: start: 19940101
  6. TRIAZOLAM [Concomitant]
     Indication: SLEEP DISORDER
     Route: 048
     Dates: start: 20040909, end: 20041024
  7. NITROFURANTOIN [Concomitant]
     Indication: URINARY TRACT INFECTION
     Route: 048
     Dates: start: 20020101, end: 20041027

REACTIONS (7)
  - BLOOD CHOLESTEROL INCREASED [None]
  - CHEST PAIN [None]
  - PAIN IN EXTREMITY [None]
  - PALPITATIONS [None]
  - PANIC ATTACK [None]
  - PSYCHOTIC DISORDER [None]
  - WHITE BLOOD CELL COUNT DECREASED [None]
